FAERS Safety Report 16327161 (Version 1)
Quarter: 2019Q2

REPORT INFORMATION
  Report Type: Spontaneous
  Country: US (occurrence: US)
  Receive Date: 20190517
  Receipt Date: 20190517
  Transmission Date: 20190711
  Serious: No
  Sender: FDA-Public Use
  Company Number: US-SA-2019SA134176

PATIENT
  Sex: Male

DRUGS (14)
  1. VITAMIN D3 [Concomitant]
     Active Substance: CHOLECALCIFEROL
  2. LEVETIRACETAM. [Concomitant]
     Active Substance: LEVETIRACETAM
  3. MULTIVITAMIN [VITAMINS NOS] [Concomitant]
  4. DUPIXENT [Suspect]
     Active Substance: DUPILUMAB
     Indication: DERMATITIS ATOPIC
     Dosage: 600 MG, 1X
     Route: 058
     Dates: start: 20190503, end: 20190503
  5. LISINOPRIL. [Concomitant]
     Active Substance: LISINOPRIL
  6. DUPIXENT [Suspect]
     Active Substance: DUPILUMAB
     Dosage: 300 MG, QOW
     Route: 058
  7. CLOBETASOL [Concomitant]
     Active Substance: CLOBETASOL
  8. ELOCON [Concomitant]
     Active Substance: MOMETASONE FUROATE
  9. AVEENO [Concomitant]
     Active Substance: DIMETHICONE\HOMOSALATE\OCTINOXATE\OCTISALATE\TITANIUM DIOXIDE
  10. HUMALOG [Concomitant]
     Active Substance: INSULIN LISPRO
  11. ATORVASTATIN CALCIUM. [Concomitant]
     Active Substance: ATORVASTATIN CALCIUM
  12. TRIAMCINOLONE ACETONIDE. [Concomitant]
     Active Substance: TRIAMCINOLONE ACETONIDE
  13. CALCIUM CARBONATE. [Concomitant]
     Active Substance: CALCIUM CARBONATE
  14. METHOCARBAMOL. [Concomitant]
     Active Substance: METHOCARBAMOL

REACTIONS (7)
  - Dermatitis atopic [Unknown]
  - Pruritus [Unknown]
  - Skin erosion [Unknown]
  - Erythema [Unknown]
  - Dry skin [Unknown]
  - Skin haemorrhage [Unknown]
  - Pigmentation disorder [Unknown]

NARRATIVE: CASE EVENT DATE: 20190504
